FAERS Safety Report 19935832 (Version 1)
Quarter: 2021Q4

REPORT INFORMATION
  Report Type: Spontaneous
  Country: DE (occurrence: DE)
  Receive Date: 20211008
  Receipt Date: 20211008
  Transmission Date: 20220303
  Serious: Yes (Life-Threatening, Other)
  Sender: FDA-Public Use
  Company Number: DE-CELLTRION HEALTHCARE HUNGARY KFT-2021DE007996

PATIENT

DRUGS (24)
  1. CYTARABINE [Suspect]
     Active Substance: CYTARABINE
     Indication: Diffuse large B-cell lymphoma
     Dosage: 4 GRAM PER SQUARE METRE (4 G/M2 DAY 1-2 (R-ARAC/TT) X 2 CYCLES)
  2. CYTARABINE [Suspect]
     Active Substance: CYTARABINE
     Indication: Central nervous system lymphoma
     Dosage: UNK
  3. METHOTREXATE [Suspect]
     Active Substance: METHOTREXATE
     Indication: Central nervous system lymphoma
     Dosage: UNK
  4. METHOTREXATE [Suspect]
     Active Substance: METHOTREXATE
     Indication: Diffuse large B-cell lymphoma
     Dosage: 4 GRAM PER SQUARE METRE (4 G/M2 DAY 1 (R-MTX) ONLY 2 CYCLES)
  5. DOXORUBICIN [Suspect]
     Active Substance: DOXORUBICIN
     Indication: Central nervous system lymphoma
     Dosage: UNK
  6. DOXORUBICIN [Suspect]
     Active Substance: DOXORUBICIN
     Indication: Diffuse large B-cell lymphoma
     Dosage: 50 MILLIGRAM/SQ. METER (50 MG/M2 DAY 1 (R-CHOP))
     Route: 042
  7. ACYCLOVIR [Suspect]
     Active Substance: ACYCLOVIR
     Indication: Prophylaxis
     Dosage: 800 MILLIGRAM, BID (800 MG, 2X PER DAY)
  8. CYCLOPHOSPHAMIDE [Suspect]
     Active Substance: CYCLOPHOSPHAMIDE
     Indication: Diffuse large B-cell lymphoma
     Dosage: 750 MILLIGRAM/SQ. METER (750 MG/M2 DAY 1 (R-CHOP))
     Route: 042
  9. RITUXIMAB [Suspect]
     Active Substance: RITUXIMAB
     Indication: Diffuse large B-cell lymphoma
     Dosage: 1400 MILLIGRAM (1400 MG ABS DAY DAY 1 (R-CHOP))
     Route: 058
  10. RITUXIMAB [Suspect]
     Active Substance: RITUXIMAB
     Indication: Central nervous system lymphoma
     Dosage: 1400 MILLIGRAM (1400 MG ABS DAY 1 (R-ARAC/TT))
     Route: 058
  11. RITUXIMAB [Suspect]
     Active Substance: RITUXIMAB
     Dosage: 1400 MILLIGRAM (1400 MG ABS DAY 7 (R-HD-BCNU/TT) )
     Route: 058
  12. RITUXIMAB [Suspect]
     Active Substance: RITUXIMAB
     Dosage: 1400 MILLIGRAM (1400 MG ABS DAY 0 (R-MTX) X 4)
     Route: 058
  13. RITUXIMAB [Suspect]
     Active Substance: RITUXIMAB
     Indication: Diffuse large B-cell lymphoma
     Dosage: 375 MG/M2 DAY 1 (R-CHOP) X 4
     Route: 042
  14. RITUXIMAB [Suspect]
     Active Substance: RITUXIMAB
     Indication: Central nervous system lymphoma
     Dosage: 375 MILLIGRAM/SQ. METER (375 MG/M2 DAY 0 (R-MTX) X 4)
     Route: 042
  15. BICNU [Suspect]
     Active Substance: CARMUSTINE
     Indication: Diffuse large B-cell lymphoma
     Dosage: 400 MILLIGRAM/SQ. METER (400 MG/M2 DAY 6 (R-HD-BCNU/TT) X 2 CYCLES)
  16. BICNU [Suspect]
     Active Substance: CARMUSTINE
     Indication: Central nervous system lymphoma
     Dosage: UNK
  17. CYCLOPHOSPHAMIDE [Suspect]
     Active Substance: CYCLOPHOSPHAMIDE
     Indication: Central nervous system lymphoma
     Dosage: UNK
  18. PREDNISONE [Suspect]
     Active Substance: PREDNISONE
     Indication: Central nervous system lymphoma
     Dosage: UNK
  19. PREDNISONE [Suspect]
     Active Substance: PREDNISONE
     Indication: Diffuse large B-cell lymphoma
     Dosage: 100 MILLIGRAM (100 MG ABS DAY 1-5 (R-CHOP))
     Route: 042
  20. THIOTEPA [Suspect]
     Active Substance: THIOTEPA
     Indication: Diffuse large B-cell lymphoma
     Dosage: 40 MILLIGRAM/SQ. METER (40 MG/M2 DAY 2 (R-ARAC/TT) X 2 CYCLES)
  21. THIOTEPA [Suspect]
     Active Substance: THIOTEPA
     Indication: Central nervous system lymphoma
     Dosage: 2 X 5 MG/M2 DAY 5/4 (R-HD-BCNU/TT)   UNK
  22. VINCRISTINE [Suspect]
     Active Substance: VINCRISTINE
     Indication: Diffuse large B-cell lymphoma
     Dosage: 2 / 1 MG ABS DAY 1 (R-CHOP)
     Route: 042
  23. VINCRISTINE [Suspect]
     Active Substance: VINCRISTINE
     Indication: Central nervous system lymphoma
     Dosage: UNK
  24. LEUCOVORIN [Suspect]
     Active Substance: LEUCOVORIN
     Indication: Product used for unknown indication
     Dosage: UNK

REACTIONS (1)
  - Haematotoxicity [Unknown]
